FAERS Safety Report 11349988 (Version 2)
Quarter: 2015Q3

REPORT INFORMATION
  Report Type: Report from Study
  Country: JP (occurrence: JP)
  Receive Date: 20150807
  Receipt Date: 20150908
  Transmission Date: 20151125
  Serious: Yes (Other)
  Sender: FDA-Public Use
  Company Number: JP-JNJFOC-20150723660

PATIENT
  Age: 63 Year
  Sex: Female
  Weight: 42 kg

DRUGS (8)
  1. DEPAKENE [Concomitant]
     Active Substance: VALPROIC ACID
     Indication: PSYCHOMOTOR SEIZURES
     Route: 048
     Dates: start: 20131019
  2. XEPLION [Suspect]
     Active Substance: PALIPERIDONE PALMITATE
     Indication: SCHIZOPHRENIA, PARANOID TYPE
     Route: 030
     Dates: start: 20150401, end: 20150401
  3. XEPLION [Suspect]
     Active Substance: PALIPERIDONE PALMITATE
     Indication: SCHIZOPHRENIA, PARANOID TYPE
     Route: 030
     Dates: start: 20150603, end: 20150603
  4. DETRUSITOL (TOLTERODINE TARTRATE) [Concomitant]
     Indication: HYPERTONIC BLADDER
     Route: 048
     Dates: start: 20130403
  5. HALOMONTH [Suspect]
     Active Substance: HALOPERIDOL DECANOATE
     Indication: SCHIZOPHRENIA, PARANOID TYPE
     Route: 030
     Dates: start: 20140910, end: 20150225
  6. XEPLION [Suspect]
     Active Substance: PALIPERIDONE PALMITATE
     Indication: SCHIZOPHRENIA, PARANOID TYPE
     Route: 030
     Dates: start: 20150408, end: 20150408
  7. XEPLION [Suspect]
     Active Substance: PALIPERIDONE PALMITATE
     Indication: SCHIZOPHRENIA, PARANOID TYPE
     Route: 030
     Dates: start: 20150506, end: 20150506
  8. XEPLION [Suspect]
     Active Substance: PALIPERIDONE PALMITATE
     Indication: SCHIZOPHRENIA, PARANOID TYPE
     Route: 030
     Dates: start: 20150701

REACTIONS (2)
  - Diabetes mellitus [Recovering/Resolving]
  - Extrapyramidal disorder [Unknown]

NARRATIVE: CASE EVENT DATE: 20150521
